FAERS Safety Report 10365046 (Version 1)
Quarter: 2014Q3

REPORT INFORMATION
  Report Type: Spontaneous
  Country: US (occurrence: US)
  Receive Date: 20140806
  Receipt Date: 20140806
  Transmission Date: 20150326
  Serious: No
  Sender: FDA-Public Use
  Company Number: US-GLAXOSMITHKLINE-A1065609A

PATIENT
  Age: 70 Year
  Sex: Female

DRUGS (10)
  1. ADVAIR HFA [Suspect]
     Active Substance: FLUTICASONE PROPIONATE\SALMETEROL XINAFOATE
     Indication: CHRONIC OBSTRUCTIVE PULMONARY DISEASE
     Dosage: 1PUFF VARIABLE DOSE
     Route: 055
     Dates: start: 20140311, end: 20140312
  2. LAMICTAL [Concomitant]
     Active Substance: LAMOTRIGINE
  3. KLONOPIN [Concomitant]
     Active Substance: CLONAZEPAM
  4. FOSAMAX [Concomitant]
     Active Substance: ALENDRONATE SODIUM
  5. LIPITOR [Concomitant]
     Active Substance: ATORVASTATIN CALCIUM
  6. PROAIR HFA [Concomitant]
     Active Substance: ALBUTEROL SULFATE
  7. SEROQUEL [Concomitant]
     Active Substance: QUETIAPINE FUMARATE
  8. PRILOSEC [Concomitant]
     Active Substance: OMEPRAZOLE MAGNESIUM
  9. TRAMADOL [Concomitant]
     Active Substance: TRAMADOL
  10. SINGULAIR [Concomitant]
     Active Substance: MONTELUKAST SODIUM

REACTIONS (10)
  - Asthenia [Unknown]
  - Psychomotor hyperactivity [Unknown]
  - Mania [Recovered/Resolved]
  - Euphoric mood [Unknown]
  - Depression [Unknown]
  - Feeling abnormal [Unknown]
  - Poor quality sleep [Unknown]
  - Anxiety [Unknown]
  - Lethargy [Unknown]
  - Hypersensitivity [Unknown]

NARRATIVE: CASE EVENT DATE: 20140312
